FAERS Safety Report 18096914 (Version 1)
Quarter: 2020Q3

REPORT INFORMATION
  Report Type: Report from Study
  Country: GB (occurrence: GB)
  Receive Date: 20200731
  Receipt Date: 20200731
  Transmission Date: 20201103
  Serious: Yes (Hospitalization)
  Sender: FDA-Public Use
  Company Number: GB-ASTRAZENECA-2020SE75569

PATIENT
  Age: 57 Year
  Sex: Male

DRUGS (1)
  1. FASENRA [Suspect]
     Active Substance: BENRALIZUMAB
     Indication: ASTHMA
     Dosage: 30.0MG UNKNOWN
     Route: 058

REACTIONS (4)
  - Haemolysis [Unknown]
  - Oxygen saturation decreased [Unknown]
  - Glucose-6-phosphate dehydrogenase deficiency [Unknown]
  - Anaemia [Unknown]
